FAERS Safety Report 6766970-1 (Version None)
Quarter: 2010Q2

REPORT INFORMATION
  Report Type: 
  Country: None (occurrence: None)
  Receive Date: 20100611
  Receipt Date: 20100603
  Transmission Date: 20101027
  Serious: Yes (Other)
  Sender: FDA-Public Use
  Company Number: US-AMGEN-KDC412525

PATIENT
  Sex: Male

DRUGS (9)
  1. PANITUMUMAB [Suspect]
     Indication: NEOPLASM MALIGNANT
     Route: 042
     Dates: start: 20100422
  2. PANITUMUMAB - STUDY PROCEDURE [Suspect]
  3. NIFEDIPINE [Concomitant]
     Route: 048
     Dates: start: 20091204
  4. ENALAPRIL [Concomitant]
     Route: 048
     Dates: start: 20090928
  5. FUROSEMIDE [Concomitant]
     Route: 048
     Dates: start: 20100315
  6. LORAZEPAM [Concomitant]
     Route: 048
     Dates: start: 20090320
  7. HYDROXYZINE [Concomitant]
     Route: 048
     Dates: start: 20090320
  8. ONDANSETRON [Concomitant]
     Route: 048
     Dates: start: 20090320
  9. CYCLOBENZAPRINE [Concomitant]
     Route: 048
     Dates: start: 20100120

REACTIONS (1)
  - ALANINE AMINOTRANSFERASE INCREASED [None]
